FAERS Safety Report 8891457 (Version 1)
Quarter: 2012Q4

REPORT INFORMATION
  Report Type: 
  Country: US (occurrence: US)
  Receive Date: 20121107
  Receipt Date: 20121107
  Transmission Date: 20130627
  Serious: No
  Sender: FDA-Public Use
  Company Number: US-AMGEN-USASP2011048914

PATIENT
  Sex: Female

DRUGS (1)
  1. ENBREL [Suspect]
     Indication: PSORIASIS
     Dates: start: 200306, end: 201107

REACTIONS (11)
  - Nephrolithiasis [Unknown]
  - Gait disturbance [Not Recovered/Not Resolved]
  - Ovarian cyst [Unknown]
  - Needle issue [Recovered/Resolved]
  - Injury associated with device [Recovered/Resolved]
  - Nasal congestion [Recovered/Resolved]
  - Respiratory tract congestion [Recovered/Resolved]
  - Increased tendency to bruise [Recovered/Resolved]
  - Fatigue [Not Recovered/Not Resolved]
  - Arthralgia [Not Recovered/Not Resolved]
  - Psoriasis [Not Recovered/Not Resolved]
